FAERS Safety Report 9018101 (Version 1)
Quarter: 2013Q1

REPORT INFORMATION
  Report Type: Spontaneous
  Country: FI (occurrence: FI)
  Receive Date: 20130117
  Receipt Date: 20130117
  Transmission Date: 20140127
  Serious: Yes (Hospitalization)
  Sender: FDA-Public Use
  Company Number: FI-TEVA-379642ISR

PATIENT
  Age: 69 Year
  Sex: Male

DRUGS (7)
  1. MONTELUKAST [Suspect]
     Indication: ASTHMA
     Dosage: 10 MILLIGRAM DAILY;
     Route: 048
     Dates: start: 20120906, end: 20120917
  2. PREDNISOLON 5 MG, TABLET [Concomitant]
     Dosage: 5 MILLIGRAM DAILY;
     Route: 048
  3. EMCONCOR 5 MG TABLET [Concomitant]
     Dosage: 5 MILLIGRAM DAILY;
     Route: 048
  4. ATACAND 16 MG, TABLET [Concomitant]
     Dosage: 24 MILLIGRAM DAILY; 1.5 TABLETES DAILY
     Route: 048
  5. METFOREM 1G, TABLET [Concomitant]
     Dosage: 3 GRAM DAILY;
     Route: 048
  6. SOMAC 20 MG [Concomitant]
     Dosage: 20 MILLIGRAM DAILY;
     Route: 048
  7. COHEMIN DEPOT 1 MG/ML [Concomitant]
     Dosage: .0333 MILLIGRAM DAILY; 1 MG / MONTH
     Route: 030

REACTIONS (7)
  - Leukocytoclastic vasculitis [Not Recovered/Not Resolved]
  - Rash [Recovering/Resolving]
  - Skin discolouration [Recovering/Resolving]
  - Rash [Recovering/Resolving]
  - Papule [Recovering/Resolving]
  - Skin reaction [Recovering/Resolving]
  - Haemorrhagic vasculitis [Recovering/Resolving]
